FAERS Safety Report 6254743-8 (Version None)
Quarter: 2009Q2

REPORT INFORMATION
  Report Type: 
  Country: None (occurrence: None)
  Receive Date: 20090630
  Receipt Date: 20090623
  Transmission Date: 20091009
  Serious: Yes (Other)
  Sender: FDA-Public Use
  Company Number: 2009GR_BP1481

PATIENT
  Sex: Male

DRUGS (1)
  1. FINASTERIDE [Suspect]
     Dosage: ORAL
     Route: 048

REACTIONS (1)
  - PROSTATE CANCER [None]
